FAERS Safety Report 5943920-9 (Version None)
Quarter: 2008Q4

REPORT INFORMATION
  Report Type: 
  Country: None (occurrence: None)
  Receive Date: 20081106
  Receipt Date: 20081028
  Transmission Date: 20090506
  Serious: Yes (Hospitalization, Other)
  Sender: FDA-Public Use
  Company Number: US-ELI_LILLY_AND_COMPANY-US200807000441

PATIENT
  Sex: Female

DRUGS (9)
  1. BYETTA [Suspect]
     Indication: TYPE 2 DIABETES MELLITUS
     Dosage: 5 UG, 2/D
     Route: 058
     Dates: start: 20080101, end: 20080101
  2. BYETTA [Suspect]
     Dosage: 10 UG, 2/D
     Route: 058
     Dates: start: 20080101
  3. ACTOS [Concomitant]
     Indication: TYPE 2 DIABETES MELLITUS
     Dosage: 45 MG, DAILY (1/D)
  4. ANTI-DIABETICS [Concomitant]
     Indication: DIABETES MELLITUS
     Dosage: 50 MG, DAILY (1/D)
  5. DICYCLOMINE [Concomitant]
     Dosage: 10 MG, 3/D
  6. NADOLOL [Concomitant]
     Indication: HYPERTENSION
     Dosage: 20 MG, DAILY (1/D)
     Dates: start: 20080615
  7. SPIRONOLACTONE [Concomitant]
     Indication: DIURETIC THERAPY
     Dosage: 100 MG, 2/D
     Dates: start: 20080615
  8. PREDNISONE TAB [Concomitant]
     Dosage: 10 MG, DAILY (1/D)
     Dates: start: 20070501
  9. FUROSEMIDE [Concomitant]
     Dosage: 80 MG, DAILY (1/D)

REACTIONS (2)
  - HEPATIC ENCEPHALOPATHY [None]
  - OESOPHAGEAL VARICES HAEMORRHAGE [None]
